FAERS Safety Report 7699498-5 (Version None)
Quarter: 2011Q3

REPORT INFORMATION
  Report Type: 
  Country: None (occurrence: None)
  Receive Date: 20110820
  Receipt Date: 20110404
  Transmission Date: 20111222
  Serious: No
  Sender: FDA-Public Use
  Company Number: US-ALLERGAN-1104656US

PATIENT
  Age: 75 Year
  Sex: Female

DRUGS (2)
  1. SANCTURA XR [Suspect]
     Indication: URINARY INCONTINENCE
     Dosage: 1 DF, QAM
     Route: 048
     Dates: start: 20110331
  2. THERACEPT [Concomitant]
     Indication: COGNITIVE DISORDER
     Dosage: 1 DF, QD
     Route: 048
     Dates: start: 20080101

REACTIONS (1)
  - CONSTIPATION [None]
